FAERS Safety Report 16810642 (Version 1)
Quarter: 2019Q3

REPORT INFORMATION
  Report Type: Spontaneous
  Country: US (occurrence: US)
  Receive Date: 20190916
  Receipt Date: 20190916
  Transmission Date: 20191005
  Serious: Yes (Other)
  Sender: FDA-Public Use
  Company Number: US-009507513-1909USA003864

PATIENT
  Age: 49 Year
  Sex: Female

DRUGS (8)
  1. KEYTRUDA [Suspect]
     Active Substance: PEMBROLIZUMAB
     Indication: OESOPHAGEAL CARCINOMA
     Dosage: UNK, Q3W
     Route: 042
     Dates: start: 20190709
  2. KEYTRUDA [Suspect]
     Active Substance: PEMBROLIZUMAB
     Indication: TONGUE NEOPLASM MALIGNANT STAGE UNSPECIFIED
  3. OXYCODONE [Concomitant]
     Active Substance: OXYCODONE
  4. MORPHINE [Concomitant]
     Active Substance: MORPHINE
     Dosage: FORMULATION: PATCH
  5. SANCUSO [Concomitant]
     Active Substance: GRANISETRON
  6. ATIVAN [Concomitant]
     Active Substance: LORAZEPAM
  7. TRANSDERM SCOP [Concomitant]
     Active Substance: SCOPOLAMINE
     Dosage: FORMULATION: PATCH
  8. LEVOTHYROXINE SODIUM. [Concomitant]
     Active Substance: LEVOTHYROXINE SODIUM
     Dosage: UNK

REACTIONS (1)
  - Malignant neoplasm progression [Not Recovered/Not Resolved]

NARRATIVE: CASE EVENT DATE: 201909
